FAERS Safety Report 25846048 (Version 1)
Quarter: 2025Q3

REPORT INFORMATION
  Report Type: Spontaneous
  Country: US (occurrence: None)
  Receive Date: 20250924
  Receipt Date: 20250924
  Transmission Date: 20251020
  Serious: No
  Sender: FDA-CTU
  Company Number: None

PATIENT
  Sex: Female

DRUGS (9)
  1. LENALIDOMIDE [Suspect]
     Active Substance: LENALIDOMIDE
     Indication: Plasma cell myeloma
     Dosage: FREQUENCY : DAILY;?
     Route: 048
     Dates: start: 20250827
  2. CALCIUM PLUS CAP D3 [Concomitant]
  3. ELIQUIS [Concomitant]
     Active Substance: APIXABAN
  4. FARXIGA [Concomitant]
     Active Substance: DAPAGLIFLOZIN PROPANEDIOL
  5. GABAPENTIN [Concomitant]
     Active Substance: GABAPENTIN
  6. LOVASTATIN [Concomitant]
     Active Substance: LOVASTATIN
  7. METOPROLOL SUCCINATE [Concomitant]
     Active Substance: METOPROLOL SUCCINATE
  8. NIGHTTME CGH LIQ [Concomitant]
  9. TYLENOL [Concomitant]
     Active Substance: ACETAMINOPHEN

REACTIONS (2)
  - Therapy interrupted [None]
  - Muscle spasms [None]
